FAERS Safety Report 7643944-X (Version None)
Quarter: 2011Q3

REPORT INFORMATION
  Report Type: 
  Country: None (occurrence: None)
  Receive Date: 20110729
  Receipt Date: 20101019
  Transmission Date: 20111222
  Serious: No
  Sender: FDA-Public Use
  Company Number: US-GLAXOSMITHKLINE-A0887612A

PATIENT
  Age: 44 Year
  Sex: Male

DRUGS (2)
  1. DYAZIDE [Suspect]
     Indication: HYPERTENSION
     Dosage: 10MG AT NIGHT
     Route: 048
     Dates: start: 20100823
  2. NONE [Concomitant]

REACTIONS (3)
  - FATIGUE [None]
  - HEADACHE [None]
  - BLOOD POTASSIUM DECREASED [None]
